FAERS Safety Report 14156244 (Version 5)
Quarter: 2018Q3

REPORT INFORMATION
  Report Type: Spontaneous
  Country: IT (occurrence: IT)
  Receive Date: 20171103
  Receipt Date: 20180718
  Transmission Date: 20181010
  Serious: Yes (Hospitalization)
  Sender: FDA-Public Use
  Company Number: IT-AUROBINDO-AUR-APL-2017-42827

PATIENT
  Age: 81 Year
  Sex: Female

DRUGS (8)
  1. AMISULPRIDE [Concomitant]
     Active Substance: AMISULPRIDE
     Indication: PRODUCT USED FOR UNKNOWN INDICATION
     Dosage: UNK
     Route: 065
  2. LASIX [Concomitant]
     Active Substance: FUROSEMIDE
     Indication: PRODUCT USED FOR UNKNOWN INDICATION
     Dosage: UNK
     Route: 065
  3. VOLTAREN [Concomitant]
     Active Substance: DICLOFENAC SODIUM
     Indication: PRODUCT USED FOR UNKNOWN INDICATION
     Dosage: UNK
     Route: 016
  4. AMITRIPTYLINE HYDROCHLORIDE W/CHLOR/00164901/ [Concomitant]
     Indication: PRODUCT USED FOR UNKNOWN INDICATION
     Dosage: UNK
     Route: 065
  5. BISOPROLOL FILM?COATED TABLETS [Suspect]
     Active Substance: BISOPROLOL
     Indication: CARDIAC FAILURE
     Dosage: UNK
     Route: 048
  6. LANOXIN [Suspect]
     Active Substance: DIGOXIN
     Indication: CARDIAC FAILURE
     Dosage: 1 DOSAGE FORM, DAILY
     Route: 048
  7. PARIET [Concomitant]
     Active Substance: RABEPRAZOLE SODIUM
     Indication: PRODUCT USED FOR UNKNOWN INDICATION
     Dosage: UNK
     Route: 065
  8. PRADAXA [Suspect]
     Active Substance: DABIGATRAN ETEXILATE MESYLATE
     Indication: THROMBOSIS PROPHYLAXIS
     Dosage: 300 MG, DAILY
     Route: 048

REACTIONS (2)
  - Microcytic anaemia [Recovering/Resolving]
  - Hypochromic anaemia [Recovering/Resolving]

NARRATIVE: CASE EVENT DATE: 20170825
